FAERS Safety Report 10022317 (Version 1)
Quarter: 2014Q1

REPORT INFORMATION
  Report Type: Spontaneous
  Country: US (occurrence: US)
  Receive Date: 20140319
  Receipt Date: 20140319
  Transmission Date: 20141002
  Serious: No
  Sender: FDA-Public Use
  Company Number: US-GILEAD-2014-0097049

PATIENT
  Age: 61 Year
  Sex: Female

DRUGS (10)
  1. LETAIRIS [Suspect]
     Indication: COR PULMONALE CHRONIC
     Dosage: 10 MG, QD
     Route: 065
     Dates: start: 20131122
  2. BLACK CHERRY CONCENTRATE [Concomitant]
  3. LASIX                              /00032601/ [Concomitant]
  4. GARCINIA CAMBOGIA COMP [Concomitant]
  5. FISH OIL [Concomitant]
  6. PROBIOTICS NOS [Concomitant]
  7. ALEVE [Concomitant]
  8. PREVACID [Concomitant]
  9. PROZAC [Concomitant]
  10. REVATIO [Concomitant]

REACTIONS (1)
  - Swollen tongue [Not Recovered/Not Resolved]
